FAERS Safety Report 20855100 (Version 2)
Quarter: 2022Q2

REPORT INFORMATION
  Report Type: Other
  Country: US (occurrence: US)
  Receive Date: 20220520
  Receipt Date: 20220621
  Transmission Date: 20220721
  Serious: No
  Sender: FDA-Public Use
  Company Number: US-DECIPHERA PHARMACEUTICALS LLC-2022US000401

PATIENT
  Sex: Male

DRUGS (1)
  1. QINLOCK [Suspect]
     Active Substance: RIPRETINIB
     Indication: Gastrointestinal stromal tumour
     Dosage: 150 MILLIGRAM, QD
     Route: 048
     Dates: start: 20220426

REACTIONS (8)
  - Asthenia [Unknown]
  - Abdominal pain [Recovered/Resolved]
  - Constipation [Recovered/Resolved]
  - Fatigue [Unknown]
  - Hypotension [Not Recovered/Not Resolved]
  - Alopecia [Not Recovered/Not Resolved]
  - Hyperkeratosis [Recovering/Resolving]
  - Pain in extremity [Recovering/Resolving]

NARRATIVE: CASE EVENT DATE: 20220101
